FAERS Safety Report 22001852 (Version 3)
Quarter: 2023Q2

REPORT INFORMATION
  Report Type: Spontaneous
  Country: US (occurrence: US)
  Receive Date: 20230216
  Receipt Date: 20230614
  Transmission Date: 20230721
  Serious: No
  Sender: FDA-Public Use
  Company Number: US-BRISTOL-MYERS SQUIBB COMPANY-2023-022723

PATIENT
  Age: 68 Year
  Sex: Male
  Weight: 58.8 kg

DRUGS (4)
  1. OPDIVO [Suspect]
     Active Substance: NIVOLUMAB
     Indication: Lung carcinoma cell type unspecified stage 0
     Route: 042
  2. YERVOY [Suspect]
     Active Substance: IPILIMUMAB
     Indication: Lung carcinoma cell type unspecified stage 0
     Route: 042
  3. YERVOY [Suspect]
     Active Substance: IPILIMUMAB
     Route: 042
  4. YERVOY [Suspect]
     Active Substance: IPILIMUMAB
     Route: 042

REACTIONS (2)
  - Fatigue [Unknown]
  - Off label use [Unknown]
